FAERS Safety Report 8355981-0 (Version None)
Quarter: 2012Q2

REPORT INFORMATION
  Report Type: 
  Country: None (occurrence: None)
  Receive Date: 20120514
  Receipt Date: 20120502
  Transmission Date: 20120825
  Serious: Yes (Other)
  Sender: FDA-Public Use
  Company Number: CA-JNJFOC-20120504400

PATIENT
  Sex: Male
  Weight: 117 kg

DRUGS (1)
  1. REMICADE [Suspect]
     Indication: CROHN'S DISEASE
     Dosage: 600 MG
     Route: 042
     Dates: start: 20090601

REACTIONS (5)
  - MEAN CELL VOLUME DECREASED [None]
  - PLATELET COUNT INCREASED [None]
  - C-REACTIVE PROTEIN INCREASED [None]
  - DRUG EFFECT DECREASED [None]
  - ANAEMIA [None]
